FAERS Safety Report 25113076 (Version 2)
Quarter: 2025Q2

REPORT INFORMATION
  Report Type: Spontaneous
  Country: US (occurrence: US)
  Receive Date: 20250324
  Receipt Date: 20250401
  Transmission Date: 20250717
  Serious: Yes (Other)
  Sender: AMNEAL
  Company Number: US-AMNEAL PHARMACEUTICALS-2025-AMRX-01014

PATIENT
  Age: 73 Year
  Sex: Male
  Weight: 90.703 kg

DRUGS (1)
  1. CREXONT [Suspect]
     Active Substance: CARBIDOPA\LEVODOPA
     Indication: Parkinson^s disease
     Dosage: 87.5/350 MG, 02 CAPSULES, 3X/DAY
     Route: 048
     Dates: start: 20250307, end: 20250314

REACTIONS (8)
  - Dystonia [Recovering/Resolving]
  - Toxicity to various agents [Recovered/Resolved]
  - Dyskinesia [Recovered/Resolved]
  - Musculoskeletal stiffness [Recovered/Resolved]
  - Dysarthria [Recovered/Resolved]
  - Nightmare [Recovered/Resolved]
  - Mood altered [Recovered/Resolved]
  - Product substitution issue [Unknown]

NARRATIVE: CASE EVENT DATE: 20250308
